FAERS Safety Report 9238831 (Version 1)
Quarter: 2013Q2

REPORT INFORMATION
  Report Type: Spontaneous
  Country: CH (occurrence: CH)
  Receive Date: 20130418
  Receipt Date: 20130418
  Transmission Date: 20140414
  Serious: Yes (Other)
  Sender: FDA-Public Use
  Company Number: CH-ROCHE-1200027

PATIENT
  Age: 15 Year
  Sex: Female
  Weight: 55.7 kg

DRUGS (2)
  1. MIRCERA [Suspect]
     Indication: FATIGUE
     Route: 042
     Dates: start: 20120627, end: 20130227
  2. MIRCERA [Suspect]
     Indication: FATIGUE

REACTIONS (1)
  - Thrombocytopenia [Recovering/Resolving]
